FAERS Safety Report 4702926-8 (Version None)
Quarter: 2005Q2

REPORT INFORMATION
  Report Type: 
  Country: None (occurrence: None)
  Receive Date: 20050629
  Receipt Date: 20050614
  Transmission Date: 20051028
  Serious: No
  Sender: FDA-Public Use
  Company Number: JP-JNJFOC-20050400987

PATIENT
  Sex: Female

DRUGS (23)
  1. DUROTEP [Suspect]
     Route: 062
     Dates: start: 20050215
  2. DUROTEP [Suspect]
     Route: 062
     Dates: start: 20050215
  3. DUROTEP [Suspect]
     Indication: CANCER PAIN
     Route: 062
     Dates: start: 20050215
  4. FENTANYL CITRATE [Concomitant]
     Indication: CANCER PAIN
     Route: 042
     Dates: start: 20050208
  5. METOCLOPRAMIDE [Concomitant]
     Route: 042
     Dates: start: 20050209
  6. FUROSEMIDE [Concomitant]
     Indication: OEDEMA
     Route: 042
     Dates: start: 20050209
  7. BETAMETHASONE SODIUM PHOSPHATE [Concomitant]
     Indication: OEDEMA
     Route: 042
     Dates: start: 20050209
  8. DESLANOSIDE [Concomitant]
     Indication: OEDEMA
     Route: 041
     Dates: start: 20050209
  9. MULTIPLE VITAMIN [Concomitant]
     Route: 041
     Dates: start: 20050209
  10. MULTIPLE VITAMIN [Concomitant]
     Route: 041
     Dates: start: 20050209
  11. MULTIPLE VITAMIN [Concomitant]
     Route: 041
     Dates: start: 20050209
  12. MULTIPLE VITAMIN [Concomitant]
     Route: 041
     Dates: start: 20050209
  13. MULTIPLE VITAMIN [Concomitant]
     Route: 041
     Dates: start: 20050209
  14. MULTIPLE VITAMIN [Concomitant]
     Route: 041
     Dates: start: 20050209
  15. MULTIPLE VITAMIN [Concomitant]
     Route: 041
     Dates: start: 20050209
  16. MULTIPLE VITAMIN [Concomitant]
     Indication: NUTRITIONAL SUPPORT
     Dosage: 7 ONE DOSAGE FORM/DAY
     Route: 041
     Dates: start: 20050209
  17. INITIATION MEDIUM [Concomitant]
     Route: 041
     Dates: start: 20050209
  18. INITIATION MEDIUM [Concomitant]
     Route: 041
     Dates: start: 20050209
  19. INITIATION MEDIUM [Concomitant]
     Indication: DEHYDRATION
     Dosage: ONE 500 ML/DAY
     Route: 041
     Dates: start: 20050209
  20. MIXED AMINO ACID, CARBOHYDRATE, ELECTROLYTE COMBINED DRUG [Concomitant]
     Indication: DEHYDRATION
     Dosage: TWO TO THREE 500 ML/DAY
     Route: 041
     Dates: start: 20050209
  21. MAGNESIUM OXIDE [Concomitant]
     Indication: CONSTIPATION
     Route: 049
     Dates: start: 20050210
  22. FAMOTIDINE [Concomitant]
     Route: 049
     Dates: start: 20050210
  23. TULOBUTEROL [Concomitant]
     Indication: RESPIRATORY DISTRESS
     Route: 065
     Dates: start: 20050210

REACTIONS (1)
  - NO ADVERSE DRUG EFFECT [None]
